FAERS Safety Report 6942309-3 (Version None)
Quarter: 2010Q3

REPORT INFORMATION
  Report Type: 
  Country: None (occurrence: None)
  Receive Date: 20100826
  Receipt Date: 20100818
  Transmission Date: 20110219
  Serious: Yes (Hospitalization)
  Sender: FDA-Public Use
  Company Number: FR-NOVOPROD-313515

PATIENT
  Age: 64 Year
  Sex: Male

DRUGS (8)
  1. VICTOZA [Suspect]
     Indication: DIABETES MELLITUS
     Dosage: UK/SC
     Route: 058
     Dates: start: 20100707, end: 20100801
  2. SEROPLEX [Suspect]
     Dosage: 20 MG, QD
  3. KARDEGIC                           /00002703/ [Suspect]
     Indication: CEREBRAL ISCHAEMIA
     Dosage: 300 MG, QD
     Route: 048
  4. GLUCOPHAGE [Concomitant]
     Dosage: 2000 MG, QD
     Route: 048
     Dates: start: 20100707
  5. SIMVASTATIN [Concomitant]
     Dosage: 20 MG, QD
     Route: 048
  6. LERCAN [Concomitant]
     Dosage: 20 MG, QD
  7. COAPROVEL [Concomitant]
     Dosage: 300/25MG
  8. ALLOPURINOL [Concomitant]

REACTIONS (1)
  - MUSCLE HAEMORRHAGE [None]
